FAERS Safety Report 10043702 (Version 1)
Quarter: 2014Q1

REPORT INFORMATION
  Report Type: Report from Study
  Country: JP (occurrence: JP)
  Receive Date: 20140328
  Receipt Date: 20140328
  Transmission Date: 20141002
  Serious: Yes (Other)
  Sender: FDA-Public Use
  Company Number: PHHY2014JP037288

PATIENT
  Age: 78 Year
  Sex: Female

DRUGS (4)
  1. EXELON [Suspect]
     Indication: DEMENTIA ALZHEIMER^S TYPE
     Dosage: 4.5 MG, UNK
     Route: 062
     Dates: start: 20121023, end: 20121119
  2. EXELON [Suspect]
     Dosage: 9 MG, UNK
     Route: 062
     Dates: start: 20121120, end: 20121217
  3. EXELON [Suspect]
     Dosage: 13.5 MG, UNK
     Route: 062
     Dates: start: 20121218, end: 20130114
  4. EXELON [Suspect]
     Dosage: 18 MG, UNK
     Route: 062
     Dates: start: 20130115

REACTIONS (1)
  - Sinoatrial block [Recovered/Resolved]
